FAERS Safety Report 25803913 (Version 3)
Quarter: 2025Q3

REPORT INFORMATION
  Report Type: Report from Study
  Country: EU (occurrence: EU)
  Receive Date: 20250915
  Receipt Date: 20250922
  Transmission Date: 20251021
  Serious: Yes (Death, Hospitalization, Other)
  Sender: PFIZER
  Company Number: EU-PFM-2023-04616

PATIENT
  Age: 71 Year
  Sex: Male
  Weight: 71 kg

DRUGS (13)
  1. BRAFTOVI [Suspect]
     Active Substance: ENCORAFENIB
     Indication: Colorectal cancer
     Dosage: 300 MG, DAILY
     Route: 048
     Dates: start: 20230720, end: 20230817
  2. BRAFTOVI [Suspect]
     Active Substance: ENCORAFENIB
     Route: 048
     Dates: start: 20230818, end: 20230827
  3. CETUXIMAB [Suspect]
     Active Substance: CETUXIMAB
     Indication: Colorectal cancer
     Dosage: 400 MG/M2, WEEKLY
     Route: 065
     Dates: start: 20230724
  4. CETUXIMAB [Suspect]
     Active Substance: CETUXIMAB
     Dosage: 250 MG/M2, WEEKLY
     Dates: start: 20230731
  5. CETUXIMAB [Suspect]
     Active Substance: CETUXIMAB
     Route: 065
     Dates: start: 20230807
  6. CETUXIMAB [Suspect]
     Active Substance: CETUXIMAB
     Dosage: 250 MG/M2, WEEKLY
     Dates: start: 20230814
  7. CETUXIMAB [Suspect]
     Active Substance: CETUXIMAB
     Dosage: UNK, WEEKLY
     Dates: start: 20230821
  8. CETUXIMAB [Suspect]
     Active Substance: CETUXIMAB
     Dosage: 250 MG/M2, WEEKLY
     Route: 065
     Dates: start: 20230824
  9. METAMIZOL [Concomitant]
     Active Substance: METAMIZOLE SODIUM
     Indication: Pain
     Route: 048
  10. URSODIOL [Concomitant]
     Active Substance: URSODIOL
     Indication: Prophylaxis
     Dosage: 250 MG, TID (3/DAY)
     Route: 048
     Dates: start: 20230511
  11. PANTOPRAZOLE [Concomitant]
     Active Substance: PANTOPRAZOLE
     Indication: Prophylaxis
     Dosage: 20 MG, DAILY
     Route: 048
     Dates: start: 20230511
  12. FRESUBIN [CAFFEINE;CARBOHYDRATES NOS;FATS NOS;FIBRE NOS;MINERALS NOS;P [Concomitant]
     Indication: Weight decreased
     Dosage: 125 G, BID (2/DAY)
     Route: 048
     Dates: start: 20230511
  13. ELIQUIS [Concomitant]
     Active Substance: APIXABAN
     Indication: Prophylaxis
     Dosage: 2.5 MG, 2X/DAY
     Route: 048
     Dates: start: 20230627

REACTIONS (9)
  - Cerebrovascular accident [Fatal]
  - Chills [Unknown]
  - Circulatory collapse [Unknown]
  - Pyrexia [Unknown]
  - Hypersensitivity [Recovered/Resolved]
  - Circulatory collapse [Unknown]
  - Hypotension [Unknown]
  - Dizziness [Unknown]
  - Body temperature increased [Unknown]

NARRATIVE: CASE EVENT DATE: 20230814
